FAERS Safety Report 10149577 (Version 1)
Quarter: 2014Q2

REPORT INFORMATION
  Report Type: Spontaneous
  Country: CN (occurrence: None)
  Receive Date: 20140430
  Receipt Date: 20140430
  Transmission Date: 20141212
  Serious: Yes (Other)
  Sender: FDA-Public Use
  Company Number: 2014HINLIT0386

PATIENT
  Age: 19 Year
  Sex: Male

DRUGS (10)
  1. EFAVIRENZ (EFAVIRENZ) UNKNOWN [Suspect]
     Indication: ANTIRETROVIRAL THERAPY
     Dates: start: 201109
  2. LAMIVUDINE (LAMIVUDINE) UNKNOWN [Suspect]
     Indication: ANTIRETROVIRAL THERAPY
     Dates: start: 201109
  3. STAVUDINE (STAVUDINE) UNKNOWN [Suspect]
     Indication: ANTIRETROVIRAL THERAPY
     Dates: start: 201109
  4. AMPHOTERICIN B (AMPHOTERICIN B) [Concomitant]
  5. FLUTICASONE (FLUTICASONE) [Concomitant]
  6. FLUCONAZOLE (FLUCONAZOLE) [Concomitant]
  7. TENOFOVIR (TENOFOVIR) UNKNOWN [Concomitant]
  8. RALTEGRAVIR (RALTEGRAVIR) UNKNOWN [Concomitant]
  9. VORICONAZOLE (VORICONAZOLE) [Concomitant]
  10. AMOXICILLIN/SULBACTAM (AMOXICILLIN/SULBACTAM) [Concomitant]

REACTIONS (2)
  - Immune reconstitution inflammatory syndrome [None]
  - Drug interaction [None]
